FAERS Safety Report 9581490 (Version 2)
Quarter: 2013Q4

REPORT INFORMATION
  Report Type: Report from Study
  Country: AR (occurrence: AR)
  Receive Date: 20131002
  Receipt Date: 20131204
  Transmission Date: 20140711
  Serious: Yes (Other)
  Sender: FDA-Public Use
  Company Number: PHHY2013AR109338

PATIENT
  Sex: Female

DRUGS (1)
  1. DIOVAN [Suspect]
     Indication: TENSION
     Dosage: 1 DF (160MG), QD
     Route: 048

REACTIONS (4)
  - Diabetes mellitus [Unknown]
  - Sciatica [Unknown]
  - Gait disturbance [Unknown]
  - Fatigue [Unknown]
